FAERS Safety Report 10034569 (Version 1)
Quarter: 2014Q1

REPORT INFORMATION
  Report Type: Spontaneous
  Country: US (occurrence: None)
  Receive Date: 20140306
  Receipt Date: 20140306
  Transmission Date: 20141002
  Serious: Yes (Other)
  Sender: FDA-Public Use
  Company Number: 163-21880-13032392

PATIENT
  Age: 68 Year
  Sex: Male

DRUGS (1)
  1. REVLIMID [Suspect]
     Indication: PLASMA CELL MYELOMA
     Dosage: 15 MG, D, PO
     Route: 048
     Dates: start: 201202, end: 201302

REACTIONS (5)
  - Hypophagia [None]
  - Malaise [None]
  - Decreased appetite [None]
  - Blood count abnormal [None]
  - Rash [None]
